FAERS Safety Report 10285793 (Version 1)
Quarter: 2014Q3

REPORT INFORMATION
  Report Type: Spontaneous
  Country: US (occurrence: None)
  Receive Date: 20140703
  Receipt Date: 20140703
  Transmission Date: 20150326
  Serious: No
  Sender: FDA-Public Use
  Company Number: None

PATIENT
  Age: 29 Year
  Sex: Male
  Weight: 90.72 kg

DRUGS (1)
  1. GENERIC ADDERALL 20 MG MALLINCKRODT [Suspect]
     Active Substance: AMPHETAMINE ASPARTATE\AMPHETAMINE SULFATE\DEXTROAMPHETAMINE SACCHARATE\DEXTROAMPHETAMINE SULFATE
     Indication: ATTENTION DEFICIT/HYPERACTIVITY DISORDER
     Dosage: 1 PILL TWICE DAILY TAKEN BY MOUTH
     Route: 048

REACTIONS (5)
  - Personality change [None]
  - Product substitution issue [None]
  - Nervousness [None]
  - Therapeutic product ineffective [None]
  - Somnolence [None]

NARRATIVE: CASE EVENT DATE: 20140615
